FAERS Safety Report 7015450-7 (Version None)
Quarter: 2010Q3

REPORT INFORMATION
  Report Type: 
  Country: None (occurrence: None)
  Receive Date: 20100927
  Receipt Date: 20100924
  Transmission Date: 20110219
  Serious: Yes (Death)
  Sender: FDA-Public Use
  Company Number: PHHY2010AU63153

PATIENT
  Sex: Female

DRUGS (1)
  1. STALEVO 100 [Suspect]

REACTIONS (1)
  - DEATH [None]
